FAERS Safety Report 25742858 (Version 2)
Quarter: 2025Q3

REPORT INFORMATION
  Report Type: Report from Study
  Country: US (occurrence: US)
  Receive Date: 20250830
  Receipt Date: 20250911
  Transmission Date: 20251020
  Serious: Yes (Other)
  Sender: CSL BEHRING
  Company Number: US-BEH-2025217397

PATIENT
  Age: 51 Year
  Sex: Male
  Weight: 144.1 kg

DRUGS (3)
  1. GARADACIMAB [Suspect]
     Active Substance: GARADACIMAB
     Indication: Hereditary angioedema
     Route: 058
     Dates: start: 20250819, end: 20250819
  2. GARADACIMAB [Suspect]
     Active Substance: GARADACIMAB
     Dosage: 200 MG, QMT
     Route: 058
  3. GARADACIMAB [Suspect]
     Active Substance: GARADACIMAB
     Dosage: 2 ML, QD
     Route: 065
     Dates: start: 20250825, end: 20250829

REACTIONS (6)
  - Hereditary angioedema [Not Recovered/Not Resolved]
  - Illness [Not Recovered/Not Resolved]
  - Headache [Not Recovered/Not Resolved]
  - Hereditary angioedema [Recovered/Resolved]
  - Headache [Recovered/Resolved]
  - Illness [Recovered/Resolved]

NARRATIVE: CASE EVENT DATE: 20250819
